FAERS Safety Report 23755267 (Version 1)
Quarter: 2024Q2

REPORT INFORMATION
  Report Type: Spontaneous
  Country: US (occurrence: US)
  Receive Date: 20240418
  Receipt Date: 20240418
  Transmission Date: 20240717
  Serious: No
  Sender: FDA-Public Use
  Company Number: US-AMGEN-USASP2024076529

PATIENT

DRUGS (2)
  1. OTEZLA [Suspect]
     Active Substance: APREMILAST
     Indication: Psoriasis
     Dosage: UNK
     Route: 065
  2. OXITRIPTAN [Concomitant]
     Active Substance: OXITRIPTAN
     Dosage: UNK

REACTIONS (3)
  - Psoriasis [Unknown]
  - Tension headache [Unknown]
  - Therapeutic product effect decreased [Unknown]
